FAERS Safety Report 5500375-6 (Version None)
Quarter: 2007Q4

REPORT INFORMATION
  Report Type: 
  Country: None (occurrence: None)
  Receive Date: 20071025
  Receipt Date: 20071025
  Transmission Date: 20080405
  Serious: Yes (Death, Hospitalization)
  Sender: FDA-Public Use
  Company Number: None

PATIENT
  Sex: Male
  Weight: 59.2 kg

DRUGS (3)
  1. CYTARABINE [Suspect]
     Dosage: 825 MG
     Dates: end: 20070930
  2. DAUNORUBICIN HCL [Suspect]
     Dosage: 298 MG
     Dates: end: 20070927
  3. ETOPOSIDE [Suspect]
     Dosage: 330 MG
     Dates: end: 20070927

REACTIONS (1)
  - MULTI-ORGAN FAILURE [None]
